FAERS Safety Report 6157930-2 (Version None)
Quarter: 2009Q2

REPORT INFORMATION
  Report Type: 
  Country: None (occurrence: None)
  Receive Date: 20090417
  Receipt Date: 20090409
  Transmission Date: 20091009
  Serious: No
  Sender: FDA-Public Use
  Company Number: JP-JNJFOC-20090402751

PATIENT
  Age: 6 Decade
  Sex: Female

DRUGS (1)
  1. DUROTEP [Suspect]
     Indication: PAIN MANAGEMENT

REACTIONS (2)
  - DRUG ADMINISTERED AT INAPPROPRIATE SITE [None]
  - HENOCH-SCHONLEIN PURPURA [None]
